FAERS Safety Report 7086119-8 (Version None)
Quarter: 2010Q4

REPORT INFORMATION
  Report Type: 
  Country: None (occurrence: None)
  Receive Date: 20101105
  Receipt Date: 20101028
  Transmission Date: 20110411
  Serious: Yes (Other)
  Sender: FDA-Public Use
  Company Number: B0680956A

PATIENT
  Age: 87 Year
  Sex: Female

DRUGS (2)
  1. VALTREX [Suspect]
     Indication: HERPES ZOSTER
     Dosage: 2000MG PER DAY
     Route: 048
     Dates: start: 20101020, end: 20101021
  2. ZOVIRAX [Concomitant]
     Indication: HERPES ZOSTER
     Route: 061
     Dates: start: 20101013, end: 20101019

REACTIONS (4)
  - APALLIC SYNDROME [None]
  - DECUBITUS ULCER [None]
  - HAEMORRHAGE [None]
  - STEVENS-JOHNSON SYNDROME [None]
